FAERS Safety Report 6283763-2 (Version None)
Quarter: 2009Q3

REPORT INFORMATION
  Report Type: 
  Country: None (occurrence: None)
  Receive Date: 20090724
  Receipt Date: 20070828
  Transmission Date: 20100115
  Serious: Yes (Other)
  Sender: FDA-Public Use
  Company Number: US-ASTRAZENECA-2006UW07710

PATIENT
  Age: 447 Month
  Sex: Female
  Weight: 102.1 kg

DRUGS (36)
  1. SEROQUEL [Suspect]
     Indication: POST-TRAUMATIC STRESS DISORDER
     Route: 048
     Dates: start: 20000101, end: 20030101
  2. SEROQUEL [Suspect]
     Indication: BIPOLAR DISORDER
     Route: 048
     Dates: start: 20000101, end: 20030101
  3. SEROQUEL [Suspect]
     Indication: ANXIETY
     Route: 048
     Dates: start: 20000101, end: 20030101
  4. SEROQUEL [Suspect]
     Indication: INSOMNIA
     Route: 048
     Dates: start: 20000101, end: 20030101
  5. SEROQUEL [Suspect]
     Dosage: 25MG -100MG
     Route: 048
     Dates: start: 20010613
  6. SEROQUEL [Suspect]
     Dosage: 25MG -100MG
     Route: 048
     Dates: start: 20010613
  7. SEROQUEL [Suspect]
     Dosage: 25MG -100MG
     Route: 048
     Dates: start: 20010613
  8. SEROQUEL [Suspect]
     Dosage: 25MG -100MG
     Route: 048
     Dates: start: 20010613
  9. HYDROCHLOROTHIAZIDE, SPIRONOLACTONE [Concomitant]
  10. LIPITOR [Concomitant]
  11. METOPROLOL SUCCINATE [Concomitant]
  12. ASPIRIN [Concomitant]
  13. GLUCOPHAGE [Concomitant]
  14. IMITREX [Concomitant]
  15. FLOVENT [Concomitant]
  16. ALBUTEROL [Concomitant]
  17. PERCOCET [Concomitant]
  18. AMITRIPTYLINE HCL [Concomitant]
  19. TRILISATE [Concomitant]
  20. INDOMETHACIN [Concomitant]
  21. MORPHINE [Concomitant]
  22. NASONEX [Concomitant]
  23. LISINOPRIL [Concomitant]
  24. PROMETHAZINE [Concomitant]
  25. WELLBUTRIN [Concomitant]
  26. CLARITIN [Concomitant]
  27. TOBRADEX [Concomitant]
  28. OXYCODONE HCL [Concomitant]
  29. METRONIDAZOLE [Concomitant]
  30. DOXEPIN HCL [Concomitant]
  31. CLOBETASOL PROPIONATE [Concomitant]
  32. ZYRTEC [Concomitant]
  33. ADVAIR HFA [Concomitant]
  34. URISTAT [Concomitant]
  35. EFFEXOR [Concomitant]
  36. XANAX [Concomitant]

REACTIONS (3)
  - DIABETES MELLITUS [None]
  - DIABETIC NEUROPATHY [None]
  - NEUROPATHY PERIPHERAL [None]
